FAERS Safety Report 7583851-4 (Version None)
Quarter: 2011Q2

REPORT INFORMATION
  Report Type: 
  Country: None (occurrence: None)
  Receive Date: 20110630
  Receipt Date: 20110622
  Transmission Date: 20111010
  Serious: Yes (Other)
  Sender: FDA-Public Use
  Company Number: AU-JNJFOC-20110611877

PATIENT
  Sex: Male

DRUGS (1)
  1. NICORETTE [Suspect]
     Indication: SMOKING CESSATION THERAPY
     Route: 002

REACTIONS (19)
  - CONSTIPATION [None]
  - PAIN IN EXTREMITY [None]
  - IRRITABILITY [None]
  - DISTURBANCE IN ATTENTION [None]
  - DISORIENTATION [None]
  - HYPERHIDROSIS [None]
  - GINGIVAL DISORDER [None]
  - DEPENDENCE [None]
  - SWELLING [None]
  - TREMOR [None]
  - WITHDRAWAL SYNDROME [None]
  - DRUG WITHDRAWAL SYNDROME [None]
  - DRUG DEPENDENCE [None]
  - FATIGUE [None]
  - MOUTH ULCERATION [None]
  - DEPRESSION [None]
  - ANXIETY [None]
  - INTENTIONAL DRUG MISUSE [None]
  - INSOMNIA [None]
